FAERS Safety Report 6057757-6 (Version None)
Quarter: 2009Q1

REPORT INFORMATION
  Report Type: 
  Country: None (occurrence: None)
  Receive Date: 20090129
  Receipt Date: 20090119
  Transmission Date: 20090719
  Serious: Yes (Other)
  Sender: FDA-Public Use
  Company Number: PHBS2009TR00549

PATIENT
  Age: 24 Year
  Sex: Female

DRUGS (3)
  1. OXCARBAZEPINE [Suspect]
     Indication: CONVULSION
     Dosage: 1200MG/DAY
  2. CARBAMAZEPINE [Suspect]
     Indication: CONVULSION
     Dosage: 1000 MG/DAY
  3. LAMOTRIGINE [Suspect]
     Indication: CONVULSION
     Dosage: 100 MG/DAY

REACTIONS (4)
  - CAESAREAN SECTION [None]
  - CONDITION AGGRAVATED [None]
  - CONVULSION [None]
  - DRUG EXPOSURE DURING PREGNANCY [None]
